FAERS Safety Report 14298242 (Version 1)
Quarter: 2017Q4

REPORT INFORMATION
  Report Type: Spontaneous
  Country: IT (occurrence: IT)
  Receive Date: 20171218
  Receipt Date: 20171218
  Transmission Date: 20180321
  Serious: Yes (Other)
  Sender: FDA-Public Use
  Company Number: IT-PFIZER INC-2017535693

PATIENT
  Age: 56 Year
  Sex: Female

DRUGS (1)
  1. VINCRISTINE SULFATE. [Suspect]
     Active Substance: VINCRISTINE SULFATE
     Dosage: 2 MG, FOLLOWED BY ANOTHER 2 MG, SIX DAYS LATER

REACTIONS (2)
  - Pneumonia cytomegaloviral [Unknown]
  - Hyperglycaemia [Unknown]
